FAERS Safety Report 8181229-6 (Version None)
Quarter: 2012Q1

REPORT INFORMATION
  Report Type: 
  Country: None (occurrence: None)
  Receive Date: 20120302
  Receipt Date: 20120222
  Transmission Date: 20120608
  Serious: Yes (Hospitalization)
  Sender: FDA-Public Use
  Company Number: JP-AMGEN-JPNCT2012005497

PATIENT
  Age: 64 Year
  Sex: Female
  Weight: 48 kg

DRUGS (4)
  1. FERRUM [Concomitant]
     Indication: COLON CANCER
  2. PROMACTA [Concomitant]
     Indication: GASTRITIS PROPHYLAXIS
     Dosage: 0.5 G, QD
     Route: 048
     Dates: start: 20111202
  3. FERRUM [Concomitant]
     Indication: ANAEMIA
     Dosage: 100 MG, QD
     Route: 048
     Dates: start: 20111202
  4. XGEVA [Suspect]
     Indication: OSTEOPOROSIS
     Dosage: 60 MG, Q6MO
     Route: 058
     Dates: start: 20101019, end: 20110419

REACTIONS (1)
  - COLON CANCER [None]
